FAERS Safety Report 7145366-7 (Version None)
Quarter: 2010Q4

REPORT INFORMATION
  Report Type: 
  Country: None (occurrence: None)
  Receive Date: 20101208
  Receipt Date: 20101201
  Transmission Date: 20110411
  Serious: Yes (Hospitalization)
  Sender: FDA-Public Use
  Company Number: FR-ROCHE-692877

PATIENT
  Sex: Female
  Weight: 53 kg

DRUGS (6)
  1. BEVACIZUMAB [Suspect]
     Dosage: LAST DOSE PRIOR TO SAE: 10 MARCH 2010.TEMPORARILY INTERUPTED.
     Route: 042
     Dates: start: 20100106, end: 20100331
  2. BEVACIZUMAB [Suspect]
     Route: 042
     Dates: start: 20100421
  3. PACLITAXEL [Suspect]
     Dosage: FREQUENCY: W1,W2,W3, TEMPORARILY INTERUPPTED
     Route: 042
     Dates: start: 20100106, end: 20100324
  4. PACLITAXEL [Suspect]
     Route: 042
     Dates: start: 20100421
  5. CARBOPLATIN [Suspect]
     Dosage: DOSE: 6 AUC, FREQUENCY: W1, TEMPORARILY INTERRUPTED
     Route: 042
     Dates: start: 20100106, end: 20100331
  6. CARBOPLATIN [Suspect]
     Route: 042
     Dates: start: 20100421

REACTIONS (1)
  - GASTROINTESTINAL OBSTRUCTION [None]
